FAERS Safety Report 21910562 (Version 1)
Quarter: 2023Q1

REPORT INFORMATION
  Report Type: Spontaneous
  Country: HR (occurrence: HR)
  Receive Date: 20230125
  Receipt Date: 20230125
  Transmission Date: 20230417
  Serious: Yes (Other)
  Sender: FDA-Public Use
  Company Number: None

PATIENT
  Sex: Male

DRUGS (2)
  1. FEVARIN [Suspect]
     Active Substance: FLUVOXAMINE MALEATE
     Indication: Product used for unknown indication
     Dosage: 3 GRAM, QD (30 TABLETS OF 100 MG)
     Route: 048
     Dates: start: 202211, end: 202211
  2. PROMAZINE HYDROCHLORIDE [Suspect]
     Active Substance: PROMAZINE HYDROCHLORIDE
     Indication: Product used for unknown indication
     Dosage: 625 MILLIGRAM, QD (25 TABLETS OF 25 MG)
     Route: 048
     Dates: start: 202211, end: 202211

REACTIONS (10)
  - Oxygen saturation decreased [Unknown]
  - Dependence on respirator [Unknown]
  - Intentional overdose [Unknown]
  - Loss of consciousness [Unknown]
  - Coma [Unknown]
  - Pupil fixed [Unknown]
  - Tachycardia [Unknown]
  - Mydriasis [Unknown]
  - Hypertension [Unknown]
  - Dyspnoea [Unknown]

NARRATIVE: CASE EVENT DATE: 20221101
